FAERS Safety Report 4293398-9 (Version None)
Quarter: 2004Q1

REPORT INFORMATION
  Report Type: 
  Country: None (occurrence: None)
  Receive Date: 20040126
  Receipt Date: 20031104
  Transmission Date: 20041129
  Serious: No
  Sender: FDA-Public Use
  Company Number: USA031151731

PATIENT
  Age: 61 Year
  Sex: Female

DRUGS (6)
  1. FORTEO [Suspect]
     Indication: OSTEOPOROSIS
  2. PROZAC [Concomitant]
  3. KLONOPIN [Concomitant]
  4. DYAZIDE [Concomitant]
  5. PROCRIT (ERYTHROPOIETIN) [Concomitant]
  6. SEROQUEL [Concomitant]

REACTIONS (2)
  - MUSCLE CRAMP [None]
  - MYALGIA [None]
